FAERS Safety Report 7431968-7 (Version None)
Quarter: 2011Q1

REPORT INFORMATION
  Report Type: 
  Country: None (occurrence: None)
  Receive Date: 20110302
  Receipt Date: 20091113
  Transmission Date: 20110831
  Serious: No
  Sender: FDA-Public Use
  Company Number: 002442

PATIENT
  Sex: Female

DRUGS (7)
  1. ENALAPRIL [Suspect]
     Dosage: 10 MG
  2. PREDNISOLONE [Concomitant]
  3. HYDROCHLOROTHIAZIDE [Concomitant]
  4. HYDROCODONE BITARTRATE [Concomitant]
  5. IBUPROFEN [Concomitant]
  6. MTX [Concomitant]
  7. CIMZIA [Suspect]
     Indication: RHEUMATOID ARTHRITIS
     Dosage: 400 MG EVERY 2 WEEKS

REACTIONS (2)
  - FALL [None]
  - CONTUSION [None]
